FAERS Safety Report 19441740 (Version 1)
Quarter: 2021Q2

REPORT INFORMATION
  Report Type: Spontaneous
  Country: US (occurrence: US)
  Receive Date: 20210621
  Receipt Date: 20210621
  Transmission Date: 20210717
  Serious: Yes (Life-Threatening, Hospitalization, Other)
  Sender: FDA-Public Use
  Company Number: US-LUPIN PHARMACEUTICALS INC.-2021-09733

PATIENT
  Age: 19 Year
  Sex: Female
  Weight: 67 kg

DRUGS (1)
  1. BUPROPION. [Suspect]
     Active Substance: BUPROPION
     Indication: PRODUCT USED FOR UNKNOWN INDICATION
     Dosage: 53 DOSAGE FORM (SUSTAINED?RELEASE TABLETS)
     Route: 048

REACTIONS (8)
  - Generalised tonic-clonic seizure [Recovered/Resolved]
  - Suicide attempt [Unknown]
  - Serotonin syndrome [Recovering/Resolving]
  - Sinus tachycardia [Recovering/Resolving]
  - Intentional overdose [Unknown]
  - Nervous system disorder [Recovering/Resolving]
  - Hallucination, visual [Recovering/Resolving]
  - Supraventricular tachycardia [Recovering/Resolving]
